FAERS Safety Report 9956568 (Version 2)
Quarter: 2014Q1

REPORT INFORMATION
  Report Type: Report from Study
  Country: US (occurrence: US)
  Receive Date: 20140304
  Receipt Date: 20140304
  Transmission Date: 20141002
  Serious: No
  Sender: FDA-Public Use
  Company Number: US-ABBVIE-13P-163-1084807-00

PATIENT
  Age: 43 Year
  Sex: Female

DRUGS (12)
  1. HUMIRA [Suspect]
     Indication: RHEUMATOID ARTHRITIS
     Dates: start: 20130416
  2. OMEPRAZOLE [Concomitant]
     Indication: GASTRIC DISORDER
  3. POTASSIUM [Concomitant]
     Indication: PRODUCT USED FOR UNKNOWN INDICATION
     Dosage: WITH BLOOD PRESSURE PILL
  4. ATENOLOL [Concomitant]
     Indication: HYPERTENSION
  5. FENTANYL [Concomitant]
     Indication: PAIN
  6. PERCOCET [Concomitant]
     Indication: PAIN
  7. PREDNISONE [Concomitant]
     Indication: ARTHROPATHY
  8. NEURONTIN [Concomitant]
     Indication: NERVE INJURY
  9. HYDROCHLOROTH [Concomitant]
     Indication: DIURETIC THERAPY
  10. AMBIEN [Concomitant]
     Indication: INSOMNIA
     Dosage: AT BEDTIME
  11. VALIUM [Concomitant]
     Indication: ANXIETY
  12. LEFLUNOMIDE [Concomitant]
     Indication: RHEUMATOID ARTHRITIS

REACTIONS (12)
  - Device malfunction [Unknown]
  - Injection site extravasation [Unknown]
  - Incorrect dose administered [Unknown]
  - Injection site pain [Recovered/Resolved]
  - Muscle spasms [Not Recovered/Not Resolved]
  - Injection site pain [Not Recovered/Not Resolved]
  - Muscle twitching [Not Recovered/Not Resolved]
  - Feeling abnormal [Recovered/Resolved]
  - Feeling abnormal [Recovered/Resolved]
  - Gait disturbance [Recovered/Resolved]
  - Malaise [Not Recovered/Not Resolved]
  - Pain [Not Recovered/Not Resolved]
